FAERS Safety Report 20424944 (Version 1)
Quarter: 2022Q1

REPORT INFORMATION
  Report Type: Report from Study
  Country: US (occurrence: US)
  Receive Date: 20220204
  Receipt Date: 20220204
  Transmission Date: 20220424
  Serious: No
  Sender: FDA-Public Use
  Company Number: US-EXELIXIS-CABO-20036381

PATIENT
  Age: 21 Year
  Sex: Male
  Weight: 99.773 kg

DRUGS (2)
  1. CABOMETYX [Suspect]
     Active Substance: CABOZANTINIB S-MALATE
     Indication: Connective tissue neoplasm
     Dosage: 100 MG (TAKE 1 TABLET OF 40MG AND 1 TABLET OF 60MG MONDAY THROUGH SATURDAY(DO NOT TAKE ON SUNDAY) TO
     Route: 048
     Dates: start: 20200415
  2. CABOMETYX [Suspect]
     Active Substance: CABOZANTINIB S-MALATE
     Indication: Soft tissue sarcoma

REACTIONS (3)
  - Product dose omission issue [Unknown]
  - Inappropriate schedule of product administration [Unknown]
  - Off label use [Unknown]

NARRATIVE: CASE EVENT DATE: 20200415
